FAERS Safety Report 10047445 (Version 1)
Quarter: 2014Q1

REPORT INFORMATION
  Report Type: Not Available
  Country: FR (occurrence: FR)
  Receive Date: 20140331
  Receipt Date: 20140331
  Transmission Date: 20141002
  Serious: Yes (Hospitalization)
  Sender: FDA-Public Use
  Company Number: FR-ASTELLAS-2014EU002597

PATIENT
  Age: 73 Year
  Sex: Male

DRUGS (15)
  1. XTANDI [Suspect]
     Indication: PROSTATE CANCER METASTATIC
     Dosage: 160 MG, UNKNOWN/D
     Route: 048
     Dates: start: 20140201, end: 20140206
  2. CORTANCYL [Suspect]
     Indication: PROSTATE CANCER METASTATIC
     Dosage: 5 MG, UID/QD
     Route: 048
     Dates: start: 20140130
  3. AMLOR [Concomitant]
     Dosage: UNK
     Route: 065
  4. AMIODARONE [Concomitant]
     Dosage: 100 MG, UID/QD
     Route: 065
  5. KARDEGIC [Concomitant]
     Dosage: UNK
     Route: 065
  6. CRESTOR [Concomitant]
     Dosage: UNK
     Route: 065
  7. OMEPRAZOLE [Concomitant]
     Dosage: UNK
     Route: 065
  8. XANAX [Concomitant]
     Dosage: UNK
     Route: 065
  9. STILNOX [Concomitant]
     Dosage: UNK
     Route: 065
  10. SPIRIVA [Concomitant]
     Dosage: UNK
     Route: 065
  11. OSLIF [Concomitant]
     Dosage: UNK
     Route: 065
  12. PARACETAMOL [Concomitant]
     Dosage: UNK
     Route: 065
  13. OXYCONTIN LP [Concomitant]
     Dosage: UNK
     Route: 065
  14. OXYNORM [Concomitant]
     Dosage: 6 DF, UNKNOWN/D
     Route: 065
  15. TARDYFERON [Concomitant]
     Dosage: UNK
     Route: 065

REACTIONS (7)
  - Asthenia [Not Recovered/Not Resolved]
  - Headache [Not Recovered/Not Resolved]
  - Flushing [Not Recovered/Not Resolved]
  - Memory impairment [Not Recovered/Not Resolved]
  - Abnormal behaviour [Not Recovered/Not Resolved]
  - Hypertension [Not Recovered/Not Resolved]
  - Chest pain [Not Recovered/Not Resolved]
